FAERS Safety Report 10261575 (Version 1)
Quarter: 2014Q2

REPORT INFORMATION
  Report Type: Spontaneous
  Country: US (occurrence: None)
  Receive Date: 20140624
  Receipt Date: 20140624
  Transmission Date: 20141212
  Serious: Yes (Other)
  Sender: FDA-Public Use
  Company Number: None

PATIENT
  Age: 83 Year
  Sex: Male
  Weight: 83.92 kg

DRUGS (11)
  1. GAMMAGARD [Suspect]
     Indication: MYASTHENIA GRAVIS
     Route: 042
     Dates: start: 20140317, end: 20140319
  2. ADVAIR HFA [Concomitant]
  3. FUROSEMIDE [Concomitant]
  4. PREDNISONE [Concomitant]
  5. SIMVASTATIN [Concomitant]
  6. COZAAR [Concomitant]
  7. TOPROL XL [Concomitant]
  8. COUMADIN [Concomitant]
  9. ALBUTEROL SULFATE [Concomitant]
  10. VITAMIN B12 [Concomitant]
  11. VITAMIN D2 [Concomitant]

REACTIONS (2)
  - Rash morbilliform [None]
  - Skin reaction [None]
